FAERS Safety Report 8058982-5 (Version None)
Quarter: 2012Q1

REPORT INFORMATION
  Report Type: 
  Country: None (occurrence: None)
  Receive Date: 20120120
  Receipt Date: 20101227
  Transmission Date: 20120608
  Serious: No
  Sender: FDA-Public Use
  Company Number: US-BAUSCH-2010BL007347

PATIENT
  Age: 64 Year
  Sex: Female
  Weight: 83 kg

DRUGS (3)
  1. VENTOLIN [Concomitant]
     Indication: ASTHMA
  2. TOBRAMYCIN [Suspect]
     Indication: ANTIBIOTIC PROPHYLAXIS
     Route: 047
     Dates: start: 20101211, end: 20101213
  3. TOBRAMYCIN [Suspect]
     Indication: OFF LABEL USE
     Route: 047
     Dates: start: 20101211, end: 20101213

REACTIONS (3)
  - URTICARIA [None]
  - EYE SWELLING [None]
  - FACE OEDEMA [None]
